FAERS Safety Report 9447405 (Version 1)
Quarter: 2013Q3

REPORT INFORMATION
  Report Type: Spontaneous
  Country: US (occurrence: US)
  Receive Date: 20130806
  Receipt Date: 20130806
  Transmission Date: 20140515
  Serious: Yes (Hospitalization)
  Sender: FDA-Public Use
  Company Number: FK201302983

PATIENT
  Age: 39 Year
  Sex: Male

DRUGS (4)
  1. LEUCOVORIN CALCIUM [Suspect]
     Indication: APPENDIX CANCER
     Route: 033
  2. DOXORUBICIN (DOXORUBICIN) (DOXORUBICIN) [Suspect]
     Indication: APPENDIX CANCER
     Route: 033
  3. FLUOROURACIL (FLUOROURACIL)(FLUOROURACIL) [Suspect]
     Indication: APPENDIX CANCER
     Route: 042
  4. MITOMYCIN [Suspect]
     Indication: APPENDIX CANCER
     Route: 033

REACTIONS (2)
  - Gastric perforation [None]
  - Abdominal sepsis [None]
